FAERS Safety Report 8970946 (Version 1)
Quarter: 2012Q4

REPORT INFORMATION
  Report Type: 
  Country: US (occurrence: US)
  Receive Date: 20121218
  Receipt Date: 20121218
  Transmission Date: 20130627
  Serious: Yes (Other)
  Sender: FDA-Public Use
  Company Number: US-PFIZER INC-2012315513

PATIENT
  Age: 25 Year
  Sex: Male
  Weight: 132 kg

DRUGS (1)
  1. VIAGRA [Suspect]
     Indication: ERECTILE DYSFUNCTION
     Dosage: UNK, daily

REACTIONS (3)
  - Drug dependence [Unknown]
  - Erection increased [Unknown]
  - Penile pain [Unknown]
